FAERS Safety Report 10758577 (Version 5)
Quarter: 2015Q2

REPORT INFORMATION
  Report Type: Spontaneous
  Country: JP (occurrence: JP)
  Receive Date: 20150203
  Receipt Date: 20150407
  Transmission Date: 20150821
  Serious: Yes (Other)
  Sender: FDA-Public Use
  Company Number: JP-AMGEN-JPNSP2015008601

PATIENT
  Age: 29 Year
  Sex: Male
  Weight: 57 kg

DRUGS (11)
  1. CYCLOPHOSPHAMIDE. [Suspect]
     Active Substance: CYCLOPHOSPHAMIDE
     Indication: CHONDROSARCOMA
     Dosage: 1200 MG/M
     Route: 065
     Dates: start: 20141125
  2. ETOPOSIDE. [Suspect]
     Active Substance: ETOPOSIDE
     Indication: CHONDROSARCOMA
     Dosage: 500 MG/M2, UNK
     Route: 065
     Dates: start: 20150107, end: 20150111
  3. G-LASTA [Suspect]
     Active Substance: PEGFILGRASTIM
     Indication: COLONY STIMULATING FACTOR PROPHYLAXIS
     Dosage: 3.6 MG, UNK
     Route: 058
     Dates: start: 20150113, end: 20150113
  4. IFOMIDE [Suspect]
     Active Substance: IFOSFAMIDE
     Dosage: UNK
     Route: 065
  5. VINCRISTINE SULFATE. [Suspect]
     Active Substance: VINCRISTINE SULFATE
     Indication: CHONDROSARCOMA
     Dosage: 1.5 MG/M (MAX 2 MG/BODY)
     Route: 042
     Dates: start: 20141125
  6. DOXORUBICIN HYDROCHLORIDE. [Suspect]
     Active Substance: DOXORUBICIN HYDROCHLORIDE
     Indication: CHONDROSARCOMA
     Dosage: 75 MG/M
     Route: 042
     Dates: start: 20141125
  7. CYCLOPHOSPHAMIDE. [Suspect]
     Active Substance: CYCLOPHOSPHAMIDE
     Dosage: 1200 MG/M
     Route: 065
     Dates: start: 20141224
  8. NEUTROGIN [Suspect]
     Active Substance: LENOGRASTIM
     Indication: PRODUCT USED FOR UNKNOWN INDICATION
     Dosage: 100 MCG, UNK
     Route: 065
     Dates: start: 20150118
  9. ETOPOSIDE. [Suspect]
     Active Substance: ETOPOSIDE
     Dosage: UNK
     Route: 065
  10. IFOMIDE [Suspect]
     Active Substance: IFOSFAMIDE
     Indication: CHONDROSARCOMA
     Dosage: 10 MG/M2, UNK
     Route: 065
     Dates: start: 20150107, end: 20150111
  11. VINCRISTINE SULFATE. [Suspect]
     Active Substance: VINCRISTINE SULFATE
     Dosage: 1.5 MG/M (MAX 2 MG/BODY)
     Route: 042
     Dates: start: 20141224

REACTIONS (3)
  - Colony stimulating factor therapy [Unknown]
  - Pneumonitis [Recovered/Resolved]
  - Pyrexia [Recovered/Resolved]

NARRATIVE: CASE EVENT DATE: 20150117
